FAERS Safety Report 5757175-1 (Version None)
Quarter: 2008Q2

REPORT INFORMATION
  Report Type: 
  Country: None (occurrence: None)
  Receive Date: 20080603
  Receipt Date: 20080527
  Transmission Date: 20081010
  Serious: Yes (Hospitalization, Other)
  Sender: FDA-Public Use
  Company Number: IE-JNJFOC-20041204127

PATIENT
  Sex: Female
  Weight: 49 kg

DRUGS (2)
  1. RISPERDAL [Suspect]
     Indication: TOURETTE'S DISORDER
     Route: 048
  2. CLONIDINE [Suspect]
     Indication: TOURETTE'S DISORDER
     Dosage: 25-25-50 MCG

REACTIONS (7)
  - DYSARTHRIA [None]
  - GRIP STRENGTH DECREASED [None]
  - HEART RATE INCREASED [None]
  - MUSCULAR WEAKNESS [None]
  - SEDATION [None]
  - TRANSIENT ISCHAEMIC ATTACK [None]
  - WEIGHT INCREASED [None]
